FAERS Safety Report 4393980-4 (Version None)
Quarter: 2004Q3

REPORT INFORMATION
  Report Type: 
  Country: None (occurrence: None)
  Receive Date: 20040702
  Receipt Date: 20040623
  Transmission Date: 20050211
  Serious: Yes (Other)
  Sender: FDA-Public Use
  Company Number: 200413145BCC

PATIENT
  Age: 31 Year
  Sex: Female
  Weight: 48.9885 kg

DRUGS (1)
  1. BACTINE PAIN RELIEVING CLEANSING SPRAY [Suspect]
     Dosage: TOPICAL
     Route: 061
     Dates: start: 20040616

REACTIONS (5)
  - ACCIDENTAL EXPOSURE [None]
  - CORNEAL REFLEX DECREASED [None]
  - FACIAL PALSY [None]
  - HYPOAESTHESIA ORAL [None]
  - MEDICATION ERROR [None]
